FAERS Safety Report 10497324 (Version 1)
Quarter: 2014Q4

REPORT INFORMATION
  Report Type: Spontaneous
  Country: HR (occurrence: HR)
  Receive Date: 20141006
  Receipt Date: 20141006
  Transmission Date: 20150528
  Serious: Yes (Death, Hospitalization)
  Sender: FDA-Public Use
  Company Number: HR-TEVA-513590ISR

PATIENT
  Age: 45 Year
  Sex: Female

DRUGS (4)
  1. FLUOROURACIL. [Suspect]
     Active Substance: FLUOROURACIL
     Indication: COLORECTAL CANCER METASTATIC
     Dosage: CYCLICAL; 400MG/M2 ON DAY 1 OF CYCLE 1
     Route: 042
  2. FLUOROURACIL. [Suspect]
     Active Substance: FLUOROURACIL
     Indication: COLORECTAL CANCER METASTATIC
     Dosage: CYCLICAL; 2,400MG/M2 DURING DAY 1 AND DAY 2 OF CYCLE 1; 48 HOURS INFUSION
     Route: 065
  3. IRINOTECAN [Suspect]
     Active Substance: IRINOTECAN
     Indication: COLORECTAL CANCER METASTATIC
     Dosage: CYCLICAL; 180MG/M2 VIA INFUSION
     Route: 065
  4. FOLINIC ACID [Suspect]
     Active Substance: LEUCOVORIN
     Indication: COLORECTAL CANCER METASTATIC
     Dosage: CYCLICAL; 400MG/M2 VIA INFUSION
     Route: 065

REACTIONS (1)
  - Posterior reversible encephalopathy syndrome [Fatal]
